FAERS Safety Report 16000781 (Version 2)
Quarter: 2019Q1

REPORT INFORMATION
  Report Type: Spontaneous
  Country: US (occurrence: US)
  Receive Date: 20190225
  Receipt Date: 20190228
  Transmission Date: 20190418
  Serious: Yes (Life-Threatening, Hospitalization, Disabling, Other)
  Sender: FDA-Public Use
  Company Number: US-PFIZER INC-2019079815

PATIENT
  Age: 48 Year
  Sex: Female

DRUGS (1)
  1. HEPARIN SODIUM. [Suspect]
     Active Substance: HEPARIN SODIUM
     Indication: DEEP VEIN THROMBOSIS
     Dosage: STARTED ON THERAPEUTIC (FULL-DOSE) DOSE OF UF TITRATED TO ANTI-XA ACTIVITY

REACTIONS (6)
  - Gangrene [Recovered/Resolved with Sequelae]
  - Heparin-induced thrombocytopenia [Recovered/Resolved]
  - Necrosis [Recovered/Resolved]
  - Cardiogenic shock [Unknown]
  - Peripheral artery thrombosis [Unknown]
  - Peripheral ischaemia [Unknown]
